FAERS Safety Report 25625863 (Version 1)
Quarter: 2025Q3

REPORT INFORMATION
  Report Type: Spontaneous
  Country: US (occurrence: US)
  Receive Date: 20250731
  Receipt Date: 20250731
  Transmission Date: 20251021
  Serious: Yes (Hospitalization)
  Sender: IPSEN BIOPHARMACEUTICALS, INC.
  Company Number: US-IPSEN Group, Research and Development-2025-18508

PATIENT
  Age: 84 Year
  Sex: Male
  Weight: 84 kg

DRUGS (15)
  1. TAZVERIK [Suspect]
     Active Substance: TAZEMETOSTAT HYDROBROMIDE
     Indication: Follicle centre lymphoma diffuse small cell lymphoma
     Dates: start: 202507
  2. CARVEDILOL [Concomitant]
     Active Substance: CARVEDILOL
  3. CYANOCOBALAMIN [Concomitant]
     Active Substance: CYANOCOBALAMIN
  4. DUTASTERIDE [Concomitant]
     Active Substance: DUTASTERIDE
  5. ENTRESTO [Concomitant]
     Active Substance: SACUBITRIL\VALSARTAN
  6. FUROSEMIDE [Concomitant]
     Active Substance: FUROSEMIDE
  7. GABAPENTIN [Concomitant]
     Active Substance: GABAPENTIN
  8. KEYTRUDA [Concomitant]
     Active Substance: PEMBROLIZUMAB
  9. LIDOCAINE AND PRILOCAINE [Concomitant]
     Active Substance: LIDOCAINE\PRILOCAINE
  10. NORCO [Concomitant]
     Active Substance: ACETAMINOPHEN\HYDROCODONE BITARTRATE
  11. ROSUVASTATIN CALCIUM [Concomitant]
     Active Substance: ROSUVASTATIN CALCIUM
  12. SPIRONOLACTONE [Concomitant]
     Active Substance: SPIRONOLACTONE
  13. TADALAFIL [Concomitant]
     Active Substance: TADALAFIL
  14. VITAMIN D3 [Concomitant]
     Active Substance: CHOLECALCIFEROL
  15. XARELTO [Concomitant]
     Active Substance: RIVAROXABAN

REACTIONS (1)
  - Hospitalisation [Recovering/Resolving]
